FAERS Safety Report 4870671-4 (Version None)
Quarter: 2006Q1

REPORT INFORMATION
  Report Type: 
  Country: None (occurrence: None)
  Receive Date: 20060103
  Receipt Date: 20051223
  Transmission Date: 20060701
  Serious: Yes (Hospitalization)
  Sender: FDA-Public Use
  Company Number: GB-JNJFOC-20051206008

PATIENT
  Age: 77 Year
  Sex: Male

DRUGS (2)
  1. MICONAZOLE [Suspect]
     Indication: ORAL INFECTION
     Route: 048
     Dates: end: 20051130
  2. WARFARIN [Interacting]
     Indication: DRUG USE FOR UNKNOWN INDICATION
     Route: 048

REACTIONS (3)
  - CONTUSION [None]
  - DRUG INTERACTION [None]
  - INTERNATIONAL NORMALISED RATIO INCREASED [None]
